FAERS Safety Report 4428404-1 (Version None)
Quarter: 2004Q3

REPORT INFORMATION
  Report Type: 
  Country: None (occurrence: None)
  Receive Date: 20040818
  Receipt Date: 20040811
  Transmission Date: 20050211
  Serious: Yes (Death, Life-Threatening, Hospitalization)
  Sender: FDA-Public Use
  Company Number: 200417963GDDC

PATIENT
  Age: 53 Year
  Sex: Male

DRUGS (13)
  1. ZAROXOLYN [Suspect]
     Indication: FLUID RETENTION
     Dosage: DOSE: UNK
     Dates: end: 20040623
  2. FUROSEMIDE [Suspect]
     Indication: HYPERTENSION
     Dosage: DOSE: UNK
     Dates: end: 20040620
  3. MICARDIS [Suspect]
     Dosage: DOSE: UNK
     Dates: start: 20030926, end: 20040620
  4. COZAAR [Suspect]
     Dosage: DOSE: UNK
     Dates: start: 20030926, end: 20040620
  5. HUMULIN [Suspect]
     Indication: DIABETES MELLITUS
     Dosage: DOSE: UNK
  6. HUMALOG [Suspect]
     Indication: DIABETES MELLITUS
     Dosage: DOSE: UNK
  7. ZOLOFT [Suspect]
     Indication: DEPRESSION
     Dosage: DOSE: UNK
  8. PLAVIX [Suspect]
     Indication: THROMBOSIS PROPHYLAXIS
     Dosage: DOSE: UNK
  9. TOPROL-XL [Concomitant]
     Indication: HYPERTENSION
     Dosage: DOSE: UNK
  10. ISOSORBIDE [Concomitant]
     Indication: CORONARY ARTERY DISEASE
     Dosage: DOSE: UNK
     Dates: end: 20040628
  11. SODIUM BICARBONATE [Concomitant]
     Indication: PROPHYLAXIS
     Dosage: DOSE: UNK
  12. NEURONTIN [Concomitant]
     Indication: NEUROPATHY
     Dosage: DOSE: UNK
     Dates: start: 20030101, end: 20040620
  13. STADOL [Concomitant]
     Indication: MYALGIA
     Dosage: DOSE: UNK
     Dates: start: 20030418, end: 20040620

REACTIONS (4)
  - CARDIAC ARREST [None]
  - CARDIAC FAILURE CONGESTIVE [None]
  - PNEUMONIA [None]
  - RENAL FAILURE CHRONIC [None]
